FAERS Safety Report 10247414 (Version 5)
Quarter: 2016Q3

REPORT INFORMATION
  Report Type: Report from Study
  Country: US (occurrence: US)
  Receive Date: 20140619
  Receipt Date: 20160808
  Transmission Date: 20161109
  Serious: Yes (Hospitalization, Other)
  Sender: FDA-Public Use
  Company Number: US-JNJFOC-20140610665

PATIENT
  Sex: Female
  Weight: 97.52 kg

DRUGS (25)
  1. MILK THISTLE [Concomitant]
     Active Substance: MILK THISTLE
     Route: 048
     Dates: start: 20140423
  2. TRIAMCINOLONE ACETONIDE. [Concomitant]
     Active Substance: TRIAMCINOLONE ACETONIDE
     Dosage: APPLY SPARINGLY AND RUB IN WELL TO AFFECTED AREA(S) TWICE DAILY ON WEEKENDS.
     Route: 061
     Dates: start: 20140611
  3. BENADRYL [Concomitant]
     Active Substance: DIPHENHYDRAMINE HYDROCHLORIDE
     Route: 048
     Dates: start: 20140314
  4. CALCIPOTRIENE. [Concomitant]
     Active Substance: CALCIPOTRIENE
     Route: 061
     Dates: start: 20130428
  5. LEVOTHYROXINE SODIUM. [Concomitant]
     Active Substance: LEVOTHYROXINE SODIUM
     Route: 048
     Dates: start: 20110301
  6. TRIAMCINOLONE ACETONIDE. [Concomitant]
     Active Substance: TRIAMCINOLONE ACETONIDE
     Dosage: APPLY SPARINGLY AND RUB IN WELL TO AFFECTED AREA(S) TWICE DAILY ON WEEKENDS.
     Route: 061
     Dates: start: 20150202
  7. VITAMIN A [Concomitant]
     Active Substance: VITAMIN A
     Route: 065
  8. FOLIC ACID. [Concomitant]
     Active Substance: FOLIC ACID
     Route: 048
     Dates: start: 20131018
  9. GABAPENTIN. [Concomitant]
     Active Substance: GABAPENTIN
     Route: 048
     Dates: start: 20131018
  10. LIDOCAINE. [Concomitant]
     Active Substance: LIDOCAINE
     Dosage: APPLY THE PATCH TO THE AFFFECTED AREA AND LEAVE IN PLACE FOR 12HR THEN REMOVE AND LEAVE OFF FOR 12HR
     Route: 061
  11. OTEZLA [Concomitant]
     Active Substance: APREMILAST
     Dosage: DOSE INCREASED AS PER PACKAGING DIRECTIONS.
     Route: 048
     Dates: start: 20150605
  12. PANTOPRAZOLE SODIUM. [Concomitant]
     Active Substance: PANTOPRAZOLE SODIUM
     Dosage: TAKE 1 TABLET 30MINS BEFORE BREAKFAST DAILY
     Route: 048
     Dates: start: 20150116
  13. TOCOPHEROL [Concomitant]
     Active Substance: TOCOPHEROL
     Route: 065
  14. SIMPONI ARIA [Suspect]
     Active Substance: GOLIMUMAB
     Indication: PSORIASIS
     Route: 042
     Dates: start: 20140818
  15. CLOBETASOL PROPIONATE. [Concomitant]
     Active Substance: CLOBETASOL PROPIONATE
     Route: 061
     Dates: start: 20130722
  16. PROTOPIC [Concomitant]
     Active Substance: TACROLIMUS
     Dosage: AAA BID TO INFLAMMATION, FACE, AXILLAE,GROIN PRN PSORIASIS.
     Route: 061
  17. NAPROXEN. [Concomitant]
     Active Substance: NAPROXEN
     Dosage: ADMINISTERED AS NEEDED
     Route: 065
  18. CALCIPOTRIENE. [Concomitant]
     Active Substance: CALCIPOTRIENE
     Route: 061
     Dates: start: 20130722
  19. HYDROCORTISONE. [Concomitant]
     Active Substance: HYDROCORTISONE
     Route: 061
     Dates: start: 20150226
  20. INSULIN [Concomitant]
     Active Substance: INSULIN NOS
     Route: 065
     Dates: start: 20150116
  21. SIMPONI ARIA [Suspect]
     Active Substance: GOLIMUMAB
     Indication: PSORIASIS
     Route: 042
     Dates: start: 201410
  22. MUPIROCIN. [Concomitant]
     Active Substance: MUPIROCIN
     Route: 061
     Dates: start: 20130828
  23. SIMPONI ARIA [Suspect]
     Active Substance: GOLIMUMAB
     Indication: PSORIASIS
     Route: 042
     Dates: start: 20140523
  24. DESONIDE. [Concomitant]
     Active Substance: DESONIDE
     Route: 061
     Dates: start: 20141006
  25. METHOTREXATE. [Concomitant]
     Active Substance: METHOTREXATE
     Route: 048
     Dates: start: 20150605

REACTIONS (13)
  - Osteopenia [Unknown]
  - Psoriatic arthropathy [Unknown]
  - Back pain [Unknown]
  - Vomiting [Unknown]
  - Thrombosis [Unknown]
  - Feeling abnormal [Unknown]
  - Infection [Unknown]
  - Drug dose omission [Unknown]
  - Abdominal pain upper [Unknown]
  - Plantar fasciitis [Unknown]
  - Nausea [Unknown]
  - Psoriasis [Not Recovered/Not Resolved]
  - Sepsis [Unknown]

NARRATIVE: CASE EVENT DATE: 2014
